FAERS Safety Report 4847439-8 (Version None)
Quarter: 2005Q4

REPORT INFORMATION
  Report Type: 
  Country: None (occurrence: None)
  Receive Date: 20051202
  Receipt Date: 20051118
  Transmission Date: 20060501
  Serious: Yes (Hospitalization)
  Sender: FDA-Public Use
  Company Number: 2005P1000521

PATIENT
  Age: 32 Year
  Sex: Male

DRUGS (7)
  1. NICARDIPINE HCL [Suspect]
     Indication: MALIGNANT HYPERTENSION
     Dosage: UNKNOWN; IV
     Route: 042
     Dates: start: 20050411, end: 20050502
  2. CAPTOPRIL [Suspect]
     Dosage: UNKNOWN; PO
     Route: 048
     Dates: start: 20050416, end: 20050418
  3. ENALAPRIL [Concomitant]
  4. TENORMIN [Concomitant]
  5. AMLOR [Concomitant]
  6. EUPRESSYL [Concomitant]
  7. CAPTOPRIL [Concomitant]

REACTIONS (2)
  - CONDITION AGGRAVATED [None]
  - RENAL FAILURE [None]
